FAERS Safety Report 13289886 (Version 1)
Quarter: 2017Q1

REPORT INFORMATION
  Report Type: Spontaneous
  Country: US (occurrence: US)
  Receive Date: 20170302
  Receipt Date: 20170302
  Transmission Date: 20170428
  Serious: Yes (Hospitalization, Other)
  Sender: FDA-Public Use
  Company Number: US-TEVA-743487USA

PATIENT
  Age: 65 Year
  Sex: Male
  Weight: 72.9 kg

DRUGS (1)
  1. SYNRIBO [Suspect]
     Active Substance: OMACETAXINE MEPESUCCINATE
     Dosage: 4.8 MILLIGRAM DAILY; HOME ADMINISTRATION
     Dates: start: 20170117, end: 20170120

REACTIONS (3)
  - Platelet count decreased [Recovered/Resolved]
  - Pharyngeal disorder [Recovered/Resolved]
  - Haemorrhage [Recovered/Resolved]

NARRATIVE: CASE EVENT DATE: 20170217
